FAERS Safety Report 6276265-0 (Version None)
Quarter: 2009Q3

REPORT INFORMATION
  Report Type: 
  Country: None (occurrence: None)
  Receive Date: 20090722
  Receipt Date: 20090713
  Transmission Date: 20100115
  Serious: Yes (Hospitalization)
  Sender: FDA-Public Use
  Company Number: AR-JNJFOC-20090705554

PATIENT
  Sex: Female
  Weight: 68.7 kg

DRUGS (18)
  1. GOLIMUMAB [Suspect]
     Route: 058
  2. GOLIMUMAB [Suspect]
     Indication: RHEUMATOID ARTHRITIS
     Route: 058
  3. GOLIMUMAB [Suspect]
     Route: 042
  4. GOLIMUMAB [Suspect]
     Route: 042
  5. PLACEBO [Suspect]
     Indication: RHEUMATOID ARTHRITIS
     Route: 042
  6. METHOTREXATE [Suspect]
     Route: 048
  7. METHOTREXATE [Suspect]
     Indication: RHEUMATOID ARTHRITIS
     Route: 048
  8. AMOXICILLIN [Concomitant]
     Route: 048
  9. AMOXICILLIN AND CLAVULANATE POTASSIUM [Concomitant]
     Route: 048
  10. ATENOLOL [Concomitant]
     Route: 048
  11. BETAMETHASONE [Concomitant]
     Route: 048
  12. CEPHALEXIN [Concomitant]
     Route: 048
  13. DICLOFENAC [Concomitant]
     Indication: RHEUMATOID ARTHRITIS
     Route: 048
  14. FOLIC ACID [Concomitant]
     Indication: RHEUMATOID ARTHRITIS
     Route: 048
  15. METHOTREXATE [Concomitant]
     Route: 048
  16. MICONAZOLE [Concomitant]
     Route: 061
  17. PREDNISONE [Concomitant]
     Indication: RHEUMATOID ARTHRITIS
     Route: 048
  18. TRIAMCINOLONE [Concomitant]
     Route: 014

REACTIONS (1)
  - PNEUMONIA [None]
